FAERS Safety Report 15160055 (Version 1)
Quarter: 2018Q3

REPORT INFORMATION
  Report Type: Spontaneous
  Country: JP (occurrence: JP)
  Receive Date: 20180718
  Receipt Date: 20180718
  Transmission Date: 20181010
  Serious: Yes (Death, Hospitalization, Other)
  Sender: FDA-Public Use
  Company Number: JP-SAKK-BA201800811001

PATIENT
  Age: 80 Year
  Sex: Male

DRUGS (2)
  1. IMMUCYST [Suspect]
     Active Substance: BACILLUS CALMETTE-GUERIN SUBSTRAIN CONNAUGHT LIVE ANTIGEN
     Indication: BLADDER CANCER
     Route: 043
  2. IMMUNOBLADDER [Suspect]
     Active Substance: BACILLUS CALMETTE-GUERIN ANTIGEN, UNSPECIFIED SUBSTRAIN
     Indication: BLADDER CANCER

REACTIONS (7)
  - Acute respiratory failure [Unknown]
  - Disseminated intravascular coagulation [Unknown]
  - Cerebral infarction [Fatal]
  - Peripheral vascular disorder [Fatal]
  - Interstitial lung disease [Unknown]
  - Renal failure [Fatal]
  - Multiple organ dysfunction syndrome [Unknown]
